FAERS Safety Report 21236729 (Version 1)
Quarter: 2022Q3

REPORT INFORMATION
  Report Type: Other
  Country: US (occurrence: None)
  Receive Date: 20220822
  Receipt Date: 20220822
  Transmission Date: 20221027
  Serious: Yes (Other)
  Sender: FDA-Public Use
  Company Number: US-ROCHE-2598549

PATIENT
  Sex: Male
  Weight: 145.28 kg

DRUGS (12)
  1. OCREVUS [Suspect]
     Active Substance: OCRELIZUMAB
     Indication: Relapsing multiple sclerosis
     Dosage: PRESCRIBED WITH 1 INFUSION EVERY 2 WEEKS 300 MG ON DAY 1 AND DAY 15
     Route: 042
     Dates: start: 20190311
  2. OCREVUS [Suspect]
     Active Substance: OCRELIZUMAB
     Dosage: GETS OVER 6.5 HOURS IN HOSPITAL;
     Route: 042
     Dates: start: 2008
  3. OCREVUS [Suspect]
     Active Substance: OCRELIZUMAB
     Dosage: GETS OVER 6.5 HOURS IN HOSPITAL;
     Route: 042
     Dates: start: 2018
  4. SOLU-MEDROL [Concomitant]
     Active Substance: METHYLPREDNISOLONE SODIUM SUCCINATE
  5. XANAX [Concomitant]
     Active Substance: ALPRAZOLAM
  6. LIPITOR [Concomitant]
     Active Substance: ATORVASTATIN CALCIUM
  7. NABUMETONE [Concomitant]
     Active Substance: NABUMETONE
  8. ALPRAZOLAM [Concomitant]
     Active Substance: ALPRAZOLAM
  9. NABUMETONE [Concomitant]
     Active Substance: NABUMETONE
  10. BUDESONIDE\FORMOTEROL\GLYCOPYRRONIUM [Concomitant]
     Active Substance: BUDESONIDE\FORMOTEROL\GLYCOPYRRONIUM
  11. CLOBETASOL PROPIONATE [Concomitant]
     Active Substance: CLOBETASOL PROPIONATE
  12. VUMERITY [Concomitant]
     Active Substance: DIROXIMEL FUMARATE

REACTIONS (11)
  - Multiple sclerosis [Not Recovered/Not Resolved]
  - Pain [Not Recovered/Not Resolved]
  - Pain in extremity [Not Recovered/Not Resolved]
  - Muscular weakness [Not Recovered/Not Resolved]
  - Myalgia [Not Recovered/Not Resolved]
  - Feeling abnormal [Unknown]
  - Libido decreased [Unknown]
  - Gastrooesophageal reflux disease [Unknown]
  - Blood cholesterol increased [Unknown]
  - Chronic obstructive pulmonary disease [Unknown]
  - COVID-19 [Unknown]

NARRATIVE: CASE EVENT DATE: 20190101
